FAERS Safety Report 7981871-9 (Version None)
Quarter: 2011Q4

REPORT INFORMATION
  Report Type: 
  Country: None (occurrence: None)
  Receive Date: 20111212
  Receipt Date: 20111201
  Transmission Date: 20120403
  Serious: Yes (Other)
  Sender: FDA-Public Use
  Company Number: 2011SP056278

PATIENT
  Sex: Male

DRUGS (3)
  1. PEG-INTRON [Suspect]
     Indication: HEPATITIS C
     Dates: start: 20110916
  2. RIBAVIRIN [Suspect]
     Indication: HEPATITIS C
     Dates: start: 20110916
  3. TELAPREVIR [Suspect]
     Indication: HEPATITIS C
     Dates: start: 20110916

REACTIONS (4)
  - ENCEPHALITIS [None]
  - HAEMATOCRIT DECREASED [None]
  - AMMONIA INCREASED [None]
  - BLOOD BILIRUBIN INCREASED [None]
